FAERS Safety Report 6037403-8 (Version None)
Quarter: 2009Q1

REPORT INFORMATION
  Report Type: 
  Country: None (occurrence: None)
  Receive Date: 20090114
  Receipt Date: 20090105
  Transmission Date: 20090719
  Serious: Yes (Other)
  Sender: FDA-Public Use
  Company Number: AU-PFIZER INC-2009152986

PATIENT

DRUGS (3)
  1. DILANTIN [Suspect]
     Indication: CONVULSION
  2. EPILIM [Suspect]
  3. CLONAZEPAM [Concomitant]

REACTIONS (3)
  - ANTICONVULSANT DRUG LEVEL DECREASED [None]
  - CONVULSION [None]
  - GASTROOESOPHAGEAL REFLUX DISEASE [None]
